FAERS Safety Report 8531162-2 (Version None)
Quarter: 2012Q3

REPORT INFORMATION
  Report Type: 
  Country: None (occurrence: None)
  Receive Date: 20120723
  Receipt Date: 20120711
  Transmission Date: 20120928
  Serious: Yes (Other)
  Sender: FDA-Public Use
  Company Number: JP-VERTEX PHARMACEUTICALS INC.-AE-2012-010451

PATIENT
  Age: 47 Year
  Sex: Female

DRUGS (6)
  1. PEGINTERFERON ALFA-2B [Concomitant]
     Route: 058
     Dates: start: 20120528
  2. RIBAVIRIN [Concomitant]
     Route: 048
     Dates: start: 20120507, end: 20120610
  3. TELAVIC (TELAPREVIR) [Suspect]
     Indication: HEPATITIS C
     Route: 048
     Dates: start: 20120507, end: 20120610
  4. TELAVIC (TELAPREVIR) [Suspect]
     Route: 048
     Dates: start: 20120618
  5. RIBAVIRIN [Concomitant]
     Route: 048
     Dates: start: 20120618
  6. PEGINTERFERON ALFA-2B [Concomitant]
     Indication: HEPATITIS C
     Route: 058
     Dates: start: 20120507, end: 20120521

REACTIONS (1)
  - WHITE BLOOD CELL COUNT DECREASED [None]
